FAERS Safety Report 5303648-5 (Version None)
Quarter: 2007Q3

REPORT INFORMATION
  Report Type: 
  Country: None (occurrence: None)
  Receive Date: 20070420
  Receipt Date: 20070411
  Transmission Date: 20080115
  Serious: Yes (Hospitalization)
  Sender: FDA-Public Use
  Company Number: IT-SHR-IT-2007-010038

PATIENT
  Age: 72 Year
  Sex: Male

DRUGS (6)
  1. FLUDARABINE PHOSPHATE [Suspect]
     Dosage: 40 MG QD X 5
     Route: 042
     Dates: start: 20070305, end: 20070309
  2. TRIMEBUTINE [Concomitant]
     Indication: CONSTIPATION
     Route: 048
     Dates: start: 20070307, end: 20070311
  3. FUROSEMIDE [Concomitant]
     Indication: DIURETIC THERAPY
     Dosage: UNK, UNK
     Route: 042
     Dates: start: 20070322, end: 20070403
  4. FUROSEMIDE [Concomitant]
     Dosage: 500 MG, UNK
     Route: 048
     Dates: start: 20070403
  5. LAEVOLAC EPS [Concomitant]
     Indication: CONSTIPATION
     Dosage: 100 ML, 1X/DAY
     Route: 048
     Dates: start: 20070331
  6. PREDNISONE TAB [Concomitant]
     Indication: PALLIATIVE CARE
     Dosage: 25 MG, 1X/DAY
     Route: 048
     Dates: start: 20070403

REACTIONS (1)
  - ASCITES [None]
